FAERS Safety Report 13679189 (Version 1)
Quarter: 2017Q2

REPORT INFORMATION
  Report Type: Spontaneous
  Country: RU (occurrence: RU)
  Receive Date: 20170622
  Receipt Date: 20170622
  Transmission Date: 20170830
  Serious: Yes (Other)
  Sender: FDA-Public Use
  Company Number: RU-SA-2017SA107869

PATIENT
  Age: 38 Year
  Sex: Female

DRUGS (1)
  1. CLEXANE [Suspect]
     Active Substance: ENOXAPARIN SODIUM
     Route: 058

REACTIONS (3)
  - Hyperaemia [Recovering/Resolving]
  - Injection site pruritus [Recovering/Resolving]
  - Exposure during pregnancy [Unknown]
